FAERS Safety Report 7572190-3 (Version None)
Quarter: 2011Q2

REPORT INFORMATION
  Report Type: 
  Country: None (occurrence: None)
  Receive Date: 20110624
  Receipt Date: 20110611
  Transmission Date: 20111010
  Serious: Yes (Congenital Anomaly, Other)
  Sender: FDA-Public Use
  Company Number: PHHY2011IN53356

PATIENT
  Sex: Male
  Weight: 2.25 kg

DRUGS (1)
  1. DICLOFENAC SODIUM [Suspect]
     Dosage: 100 MG, TID
     Route: 064

REACTIONS (10)
  - SINGLE FUNCTIONAL KIDNEY [None]
  - HIGH ARCHED PALATE [None]
  - ATRIAL SEPTAL DEFECT [None]
  - HYPERTELORISM OF ORBIT [None]
  - PULMONARY ARTERIAL HYPERTENSION [None]
  - LOWER RESPIRATORY TRACT INFECTION [None]
  - PATENT DUCTUS ARTERIOSUS [None]
  - EAR MALFORMATION [None]
  - NIPPLE DISORDER [None]
  - DYSMORPHISM [None]
